FAERS Safety Report 5340036-X (Version None)
Quarter: 2007Q2

REPORT INFORMATION
  Report Type: 
  Country: None (occurrence: None)
  Receive Date: 20070405
  Receipt Date: 20061228
  Transmission Date: 20071010
  Serious: Yes (Other)
  Sender: FDA-Public Use
  Company Number: US200611001957

PATIENT
  Age: 44 Year
  Sex: Male
  Weight: 86.2 kg

DRUGS (13)
  1. CYMBALTA [Suspect]
     Indication: PAIN
     Dosage: SEE IMAGE
     Dates: start: 20050910, end: 20050915
  2. CYMBALTA [Suspect]
     Indication: PAIN
     Dosage: SEE IMAGE
     Dates: start: 20060101, end: 20060101
  3. PAXIL [Concomitant]
  4. LORTAB [Concomitant]
  5. DURAGESIC-100 [Concomitant]
  6. LIPITOR [Concomitant]
  7. PROVIGIL [Concomitant]
  8. KLONOPIN [Concomitant]
  9. BACLOFEN [Concomitant]
  10. TOPAMAX /AUS/ (TOPIRAMATE) [Concomitant]
  11. COPAXONE [Concomitant]
  12. IMURAN [Concomitant]
  13. TESTOSTERONE [Concomitant]

REACTIONS (1)
  - SEROTONIN SYNDROME [None]
